FAERS Safety Report 21707177 (Version 2)
Quarter: 2023Q1

REPORT INFORMATION
  Report Type: Spontaneous
  Country: CN (occurrence: CN)
  Receive Date: 20221209
  Receipt Date: 20230103
  Transmission Date: 20230418
  Serious: Yes (Other)
  Sender: FDA-Public Use
  Company Number: CN-ORGANON-O2212CHN000618

PATIENT
  Age: 3 Year
  Sex: Male

DRUGS (3)
  1. SINGULAIR [Suspect]
     Active Substance: MONTELUKAST SODIUM
     Indication: Adenoidal hypertrophy
     Dosage: UNK
     Route: 048
     Dates: start: 20221015
  2. SINGULAIR [Suspect]
     Active Substance: MONTELUKAST SODIUM
     Indication: Rhinitis
     Dosage: UNK
     Route: 048
     Dates: end: 20221201
  3. SINGULAIR [Suspect]
     Active Substance: MONTELUKAST SODIUM
     Indication: Pneumonia

REACTIONS (6)
  - Urinary retention [Recovered/Resolved]
  - Impatience [Recovered/Resolved]
  - Pruritus [Recovered/Resolved]
  - Obsessive-compulsive symptom [Recovered/Resolved]
  - Product use in unapproved indication [Unknown]
  - Product use in unapproved indication [Unknown]

NARRATIVE: CASE EVENT DATE: 20221015
